FAERS Safety Report 25368671 (Version 1)
Quarter: 2025Q2

REPORT INFORMATION
  Report Type: Spontaneous
  Country: CA (occurrence: CA)
  Receive Date: 20250528
  Receipt Date: 20250528
  Transmission Date: 20250717
  Serious: Yes (Other)
  Sender: NOVARTIS
  Company Number: CA-002147023-NVSC2025CA083742

PATIENT
  Age: 47 Year
  Sex: Female

DRUGS (3)
  1. CYCLOSPORINE [Suspect]
     Active Substance: CYCLOSPORINE
     Indication: Product used for unknown indication
     Route: 065
  2. METHOTREXATE SODIUM [Concomitant]
     Active Substance: METHOTREXATE SODIUM
     Indication: Dermatitis atopic
     Route: 065
     Dates: start: 20250502
  3. CIBINQO [Concomitant]
     Active Substance: ABROCITINIB
     Indication: Dermatitis atopic
     Dosage: 200 MG, QD (ONCE DAILY X 12 MONTHS)
     Route: 048
     Dates: start: 20250513

REACTIONS (5)
  - Sjogren^s syndrome [Unknown]
  - Dermatitis atopic [Unknown]
  - Pruritus [Unknown]
  - Drug intolerance [Unknown]
  - Drug effect less than expected [Unknown]
